FAERS Safety Report 9510980 (Version 2)
Quarter: 2013Q4

REPORT INFORMATION
  Report Type: Spontaneous
  Country: JP (occurrence: None)
  Receive Date: 20130905
  Receipt Date: 20131001
  Transmission Date: 20140711
  Serious: Yes (Other)
  Sender: FDA-Public Use
  Company Number: SYM-2013-10211

PATIENT
  Age: 66 Year
  Sex: Male

DRUGS (9)
  1. CHORAEAZINE (TETRABENAZINE) (12.5 MILLIGRAM TABLET) (TETRABENAZINE) [Suspect]
     Indication: HUNTINGTON^S DISEASE
     Route: 048
     Dates: start: 20130628, end: 20130704
  2. SERENCE (HALOPERIDOL)(HALOPERIDOL) [Concomitant]
  3. FLUNITRAZEPAM (FLUMITRAZEPAM) [Concomitant]
  4. DAIKENCHUTO (OTHER THERAPEUTIC PRODUCT) (NULL) [Concomitant]
  5. SEDEKOPAN (ETIZOLAM) (ETIZOLAM) [Concomitant]
  6. RISPERDAL OD (RISPRIDIONE)(RISPERIDONE) [Concomitant]
  7. HIBERNA (PROMETHAZINE HYDROCHLORIDE) (PROMETHAZINE HYDROCHLORIDE) [Concomitant]
  8. GRAMALL (TIAPRIDE HYDROCHLORIDE) (TIAPRIDE HYDROCHLORIDE) [Concomitant]
  9. PONOPHEN (AMBROXOL HYDROCHLORIDE) (AMBROXOL HYDROCHLORIDE) [Concomitant]

REACTIONS (1)
  - Dermatitis [None]
